FAERS Safety Report 24261498 (Version 1)
Quarter: 2024Q3

REPORT INFORMATION
  Report Type: Spontaneous
  Country: US (occurrence: US)
  Receive Date: 20240829
  Receipt Date: 20240829
  Transmission Date: 20241016
  Serious: Yes (Other)
  Sender: CHATTEM
  Company Number: US-SA-2021SA003624

PATIENT
  Sex: Male

DRUGS (1)
  1. TALC [Suspect]
     Active Substance: TALC
     Indication: Product used for unknown indication
     Dosage: DOSE DESCRIPTION : UNK
     Route: 065
     Dates: start: 1973, end: 2020

REACTIONS (7)
  - Sarcomatoid mesothelioma [Unknown]
  - Immune-mediated adrenal insufficiency [Unknown]
  - Emotional distress [Unknown]
  - Injury [Unknown]
  - Exposure to chemical pollution [Unknown]
  - Occupational exposure to product [Unknown]
  - Polycythaemia [Unknown]
